FAERS Safety Report 8862893 (Version 1)
Quarter: 2012Q4

REPORT INFORMATION
  Report Type: 
  Country: FR (occurrence: FR)
  Receive Date: 20121026
  Receipt Date: 20121026
  Transmission Date: 20130627
  Serious: Yes (Hospitalization)
  Sender: FDA-Public Use
  Company Number: FR-BAYER-2012-112437

PATIENT
  Age: 37 Year
  Sex: Male

DRUGS (7)
  1. CIFLOX [Suspect]
     Dosage: 400 mg, TID
     Route: 042
     Dates: start: 20120822, end: 20120917
  2. CIFLOX [Suspect]
     Dosage: 750 mg, BID
     Route: 048
     Dates: start: 20120917, end: 20120925
  3. TAZOCILLINE [Suspect]
     Dosage: 4 g, TID
     Route: 042
     Dates: start: 20120904, end: 20120925
  4. TICARPEN [Concomitant]
     Dosage: UNK
     Dates: start: 20120822, end: 20120904
  5. VANCOMYCINE PCH [Concomitant]
     Dosage: 500 mg, QID
     Dates: start: 20120923, end: 20120925
  6. TIENAM [Concomitant]
     Dosage: 1 g, TID
     Dates: start: 20120923, end: 20120925
  7. FORTUM [Concomitant]
     Dosage: 2 g, TID
     Dates: start: 20120925, end: 20121005

REACTIONS (1)
  - Neutropenia [Recovered/Resolved]
